FAERS Safety Report 14778854 (Version 4)
Quarter: 2018Q4

REPORT INFORMATION
  Report Type: Spontaneous
  Country: US (occurrence: US)
  Receive Date: 20180419
  Receipt Date: 20181108
  Transmission Date: 20190204
  Serious: Yes (Other)
  Sender: FDA-Public Use
  Company Number: US-AMGEN-USASP2018050948

PATIENT
  Age: 56 Year
  Sex: Female

DRUGS (6)
  1. ENBREL [Suspect]
     Active Substance: ETANERCEPT
     Indication: PRODUCT USED FOR UNKNOWN INDICATION
     Dosage: UNK
     Route: 065
  2. ENBREL [Suspect]
     Active Substance: ETANERCEPT
     Dosage: UNK
     Route: 065
  3. METHOTREXATE SODIUM. [Suspect]
     Active Substance: METHOTREXATE SODIUM
     Dosage: UNK
     Route: 065
  4. XELJANZ [Suspect]
     Active Substance: TOFACITINIB CITRATE
     Indication: PRODUCT USED FOR UNKNOWN INDICATION
     Dosage: UNK
     Route: 065
  5. METHOTREXATE SODIUM. [Suspect]
     Active Substance: METHOTREXATE SODIUM
     Indication: PRODUCT USED FOR UNKNOWN INDICATION
     Dosage: UNK
     Route: 065
  6. XELJANZ XR [Suspect]
     Active Substance: TOFACITINIB CITRATE
     Indication: PRODUCT USED FOR UNKNOWN INDICATION
     Dosage: 11 MG, QD
     Route: 065

REACTIONS (22)
  - Bursitis [Not Recovered/Not Resolved]
  - Synovitis [Unknown]
  - Musculoskeletal pain [Unknown]
  - Bladder disorder [Unknown]
  - Fracture nonunion [Unknown]
  - Paraesthesia [Unknown]
  - Bone erosion [Not Recovered/Not Resolved]
  - Pain [Unknown]
  - Synovial cyst [Not Recovered/Not Resolved]
  - Pathological fracture [Unknown]
  - Lymphadenopathy [Unknown]
  - Hand deformity [Unknown]
  - Neuralgia [Unknown]
  - Back injury [Unknown]
  - Joint noise [Unknown]
  - Pulmonary mass [Unknown]
  - Wound infection [Unknown]
  - Fall [Unknown]
  - Hypoaesthesia [Unknown]
  - Contusion [Unknown]
  - Fatigue [Unknown]
  - Burning sensation [Unknown]

NARRATIVE: CASE EVENT DATE: 201805
